FAERS Safety Report 5944284-7 (Version None)
Quarter: 2008Q4

REPORT INFORMATION
  Report Type: 
  Country: None (occurrence: None)
  Receive Date: 20081105
  Receipt Date: 20081021
  Transmission Date: 20090506
  Serious: Yes (Life-Threatening, Hospitalization, Disabling, Other)
  Sender: FDA-Public Use
  Company Number: 035731

PATIENT
  Sex: Female

DRUGS (2)
  1. NALBUPHINE HYDROCHLORIDE [Suspect]
     Dosage: TRANSPLACENTAL
     Route: 064
     Dates: start: 19981020
  2. NUBAIN [Suspect]
     Dosage: TRANSPLACENTAL
     Route: 064

REACTIONS (19)
  - APGAR SCORE LOW [None]
  - BRADYCARDIA FOETAL [None]
  - BRAIN INJURY [None]
  - BRONCHOPULMONARY DYSPLASIA [None]
  - CAESAREAN SECTION [None]
  - CARDIAC ARREST NEONATAL [None]
  - CEREBRAL PALSY [None]
  - CONVULSION [None]
  - CYANOSIS NEONATAL [None]
  - DEVELOPMENTAL DELAY [None]
  - DRUG EXPOSURE DURING PREGNANCY [None]
  - DYSPHAGIA [None]
  - FOETAL DISTRESS SYNDROME [None]
  - HYPOTONIA NEONATAL [None]
  - HYPOXIC ENCEPHALOPATHY [None]
  - METABOLIC ACIDOSIS [None]
  - NEONATAL RESPIRATORY DEPRESSION [None]
  - QUADRIPLEGIA [None]
  - VISUAL ACUITY REDUCED [None]
